FAERS Safety Report 16821628 (Version 2)
Quarter: 2019Q3

REPORT INFORMATION
  Report Type: Report from Study
  Country: US (occurrence: US)
  Receive Date: 20190918
  Receipt Date: 20190927
  Transmission Date: 20191005
  Serious: Yes (Hospitalization, Other)
  Sender: FDA-Public Use
  Company Number: US-GILEAD-2019-0428796

PATIENT
  Age: 26 Year
  Sex: Female

DRUGS (5)
  1. TOBI PODHALER [Concomitant]
     Active Substance: TOBRAMYCIN
  2. AZTREONAM LYSINE [Suspect]
     Active Substance: AZTREONAM LYSINE
     Indication: CYSTIC FIBROSIS
     Dosage: 75 MG, TID, 28 DAYS ON 56 DAYS OFF
     Route: 055
     Dates: start: 20190104
  3. PULMOZYME [Concomitant]
     Active Substance: DORNASE ALFA
  4. COLISTIN [Concomitant]
     Active Substance: COLISTIN
  5. SYMDEKO [Concomitant]
     Active Substance: IVACAFTOR\TEZACAFTOR

REACTIONS (2)
  - Sinus operation [Recovering/Resolving]
  - Cystic fibrosis [Unknown]

NARRATIVE: CASE EVENT DATE: 201908
